FAERS Safety Report 8452150 (Version 3)
Quarter: 2012Q4

REPORT INFORMATION
  Report Type: 
  Country: US (occurrence: US)
  Receive Date: 20120310
  Receipt Date: 20121102
  Transmission Date: 20130627
  Serious: No
  Sender: FDA-Public Use
  Company Number: US-PFIZER INC-2012005890

PATIENT
  Age: 81 Year
  Sex: Male

DRUGS (2)
  1. XALKORI [Suspect]
     Indication: LUNG CANCER
     Dosage: 250 mg, 2x/day
     Dates: start: 20120106
  2. XALKORI [Suspect]
     Dosage: 250 mg, 2x/day
     Dates: start: 20120206

REACTIONS (2)
  - Vomiting [Unknown]
  - Malaise [Unknown]
